FAERS Safety Report 8559541-8 (Version None)
Quarter: 2012Q3

REPORT INFORMATION
  Report Type: 
  Country: None (occurrence: None)
  Receive Date: 20120802
  Receipt Date: 20120725
  Transmission Date: 20120928
  Serious: Yes (Hospitalization)
  Sender: FDA-Public Use
  Company Number: US-BAYER-2012-076270

PATIENT
  Age: 43 Year
  Sex: Female

DRUGS (23)
  1. YAZ [Suspect]
  2. FLOVENT [Concomitant]
     Dosage: 2 PUFF(S), BID
  3. LEVAQUIN [Concomitant]
     Dosage: 500 MG, 7 DAY
     Dates: start: 20111125
  4. MAXAIR [Concomitant]
  5. RHINOCORT [Concomitant]
     Dosage: 2 SPRAYS, EVERY DAY
     Route: 045
  6. SINGULAIR [Concomitant]
     Dosage: 10 MG, EVERY DAY
     Route: 048
  7. PREDNISONE [Concomitant]
     Dosage: 40 MG, EVERY DAY
     Route: 048
  8. LISINOPRIL [Concomitant]
     Dosage: 10 MG, QD
  9. ASPIRIN [Concomitant]
  10. HYDROCHLOROTHIAZIDE [Concomitant]
     Dosage: 25 MG, QD
  11. SOLU-MEDROL [Concomitant]
  12. NEXIUM [Concomitant]
     Dosage: 20 MG, EVERY DAY
     Route: 048
  13. LEVOTHYROXINE SODIUM [Concomitant]
     Dosage: 75 MCG, EVERY A.M.
     Route: 048
  14. KETOCONAZOLE [Concomitant]
     Dosage: 2 %, UNK
     Dates: start: 20111010
  15. YASMIN [Suspect]
     Dosage: UNK
     Dates: start: 20050114, end: 20120111
  16. ALLEGRA [Concomitant]
     Dosage: 1 DF, ONCE
     Route: 048
  17. SPIRIVA [Concomitant]
     Dosage: 18 MCG, UNK
     Dates: start: 20111007
  18. TAMSULOSIN HCL [Concomitant]
     Dosage: 0.4 MG, EVERY DAY
     Route: 048
  19. VENTOLIN [Concomitant]
  20. MECLIZINE [Concomitant]
     Dosage: UNK UNK, PRN
  21. CLARITIN [Concomitant]
  22. PROVENTIL [Concomitant]
     Dosage: 2 PUFF(S), Q4HR
     Route: 055
  23. PROCHLORPERAZINE [Concomitant]
     Dosage: 10 MG, UNK
     Dates: start: 20111016, end: 20111125

REACTIONS (3)
  - CHEST PAIN [None]
  - PULMONARY EMBOLISM [None]
  - DYSPNOEA [None]
